FAERS Safety Report 6233453-7 (Version None)
Quarter: 2009Q2

REPORT INFORMATION
  Report Type: 
  Country: None (occurrence: None)
  Receive Date: 20090616
  Receipt Date: 20090616
  Transmission Date: 20091009
  Serious: Yes (Other)
  Sender: FDA-Public Use
  Company Number: None

PATIENT
  Age: 21 Year
  Sex: Female
  Weight: 56.6996 kg

DRUGS (1)
  1. MINOCYCLINE HCL [Suspect]
     Indication: FURUNCLE
     Dosage: 1 PILL 2X DAILY PO
     Route: 048
     Dates: start: 20090603, end: 20090610

REACTIONS (1)
  - FUNGAL INFECTION [None]
